FAERS Safety Report 7533019-2 (Version None)
Quarter: 2011Q2

REPORT INFORMATION
  Report Type: 
  Country: None (occurrence: None)
  Receive Date: 20110608
  Receipt Date: 20110603
  Transmission Date: 20111010
  Serious: Yes (Other)
  Sender: FDA-Public Use
  Company Number: US-ROXANE LABORATORIES, INC.-2011-RO-00761RO

PATIENT
  Age: 62 Year
  Sex: Male

DRUGS (1)
  1. CODEINE SUL TAB [Suspect]
     Indication: ANTITUSSIVE THERAPY
     Dosage: 75 MG

REACTIONS (2)
  - COMA [None]
  - TOXICITY TO VARIOUS AGENTS [None]
